FAERS Safety Report 11225717 (Version 1)
Quarter: 2015Q2

REPORT INFORMATION
  Report Type: Spontaneous
  Country: US (occurrence: US)
  Receive Date: 20150629
  Receipt Date: 20150629
  Transmission Date: 20150821
  Serious: Yes (Other)
  Sender: FDA-Public Use
  Company Number: US-PROCTER_AND_GAMBLE-CIO15037883

PATIENT
  Sex: Female

DRUGS (2)
  1. CHAPSTICK CLASSIC ORIGINAL [Concomitant]
     Active Substance: PETROLATUM
  2. CREST PRO-HEALTH SENSITIVE SHIELD SMOOTH MINT [Suspect]
     Active Substance: STANNOUS FLUORIDE
     Dosage: A THIN RIBBON ON BRUSH, TWICE DAILY
     Route: 002
     Dates: end: 20150607

REACTIONS (6)
  - Swollen tongue [Recovered/Resolved]
  - Lip swelling [Recovered/Resolved]
  - Anaphylactic reaction [Recovered/Resolved]
  - Palatal swelling [Recovered/Resolved]
  - Cheilitis [Recovered/Resolved]
  - Lip pain [Recovered/Resolved]

NARRATIVE: CASE EVENT DATE: 20150607
